FAERS Safety Report 19683205 (Version 1)
Quarter: 2021Q3

REPORT INFORMATION
  Report Type: Report from Study
  Country: US (occurrence: US)
  Receive Date: 20210810
  Receipt Date: 20210810
  Transmission Date: 20211014
  Serious: Yes (Other)
  Sender: FDA-Public Use
  Company Number: US-JAZZ-2021-US-014211

PATIENT
  Sex: Female

DRUGS (5)
  1. XYREM [Suspect]
     Active Substance: SODIUM OXYBATE
     Dosage: 3.75 GRAM, BID
     Route: 048
     Dates: start: 201911
  2. XYREM [Suspect]
     Active Substance: SODIUM OXYBATE
     Indication: NARCOLEPSY
     Dosage: 2.25 GRAM, BID
     Route: 048
     Dates: start: 200601, end: 200602
  3. XYREM [Suspect]
     Active Substance: SODIUM OXYBATE
     Dosage: 3 GRAM, BID
     Route: 048
     Dates: start: 200602, end: 201607
  4. XYREM [Suspect]
     Active Substance: SODIUM OXYBATE
     Dosage: DOSE ADJUSTMENT
     Route: 048
     Dates: start: 201710, end: 201911
  5. XYREM [Suspect]
     Active Substance: SODIUM OXYBATE
     Dosage: 2.25 GRAM, BID
     Route: 048
     Dates: start: 201710, end: 201710

REACTIONS (12)
  - Deafness neurosensory [Unknown]
  - Dizziness [Not Recovered/Not Resolved]
  - Intermittent claudication [Unknown]
  - Fibromyalgia [Unknown]
  - Major depression [Unknown]
  - Migraine [Unknown]
  - Rhinitis allergic [Unknown]
  - Chronic fatigue syndrome [Not Recovered/Not Resolved]
  - Rosacea [Not Recovered/Not Resolved]
  - Vitamin D deficiency [Unknown]
  - Alopecia [Unknown]
  - Vitamin B12 deficiency [Unknown]
